FAERS Safety Report 8073816-0 (Version None)
Quarter: 2012Q1

REPORT INFORMATION
  Report Type: 
  Country: None (occurrence: None)
  Receive Date: 20120126
  Receipt Date: 20120123
  Transmission Date: 20120608
  Serious: Yes (Death, Other)
  Sender: FDA-Public Use
  Company Number: US-ROCHE-721546

PATIENT
  Sex: Female

DRUGS (2)
  1. IXABEPILONE [Suspect]
     Indication: BREAST CANCER METASTATIC
     Dosage: OVER 3 HOURS OF DAY 1 OF 21 DAYS CYCLE
     Route: 042
  2. XELODA [Suspect]
     Indication: BREAST CANCER METASTATIC
     Dosage: ON DAYS 1-14 OF A 21 DAY CYCLE
     Route: 048

REACTIONS (21)
  - DEATH [None]
  - NEUROPATHY PERIPHERAL [None]
  - NAUSEA [None]
  - MYALGIA [None]
  - STOMATITIS [None]
  - FATIGUE [None]
  - NEUROTOXICITY [None]
  - PERIPHERAL SENSORY NEUROPATHY [None]
  - DIARRHOEA [None]
  - VOMITING [None]
  - THROMBOCYTOPENIA [None]
  - LEUKOPENIA [None]
  - TOXIC NEUROPATHY [None]
  - PERIPHERAL MOTOR NEUROPATHY [None]
  - ANAEMIA [None]
  - ARTHRALGIA [None]
  - FEBRILE NEUTROPENIA [None]
  - BREAST CANCER [None]
  - PALMAR-PLANTAR ERYTHRODYSAESTHESIA SYNDROME [None]
  - NEUTROPENIA [None]
  - NEOPLASM PROGRESSION [None]
